FAERS Safety Report 7249346-2 (Version None)
Quarter: 2011Q1

REPORT INFORMATION
  Report Type: 
  Country: None (occurrence: None)
  Receive Date: 20110128
  Receipt Date: 20101130
  Transmission Date: 20110831
  Serious: Yes (Other)
  Sender: FDA-Public Use
  Company Number: US-BAYER-201025540NA

PATIENT
  Sex: Female
  Weight: 45.351 kg

DRUGS (12)
  1. YAZ [Suspect]
     Dosage: UNK
     Dates: start: 20071016
  2. M.V.I. [Concomitant]
  3. YAZ [Suspect]
     Indication: PREMENSTRUAL SYNDROME
     Dosage: UNK
     Dates: start: 20070801, end: 20091001
  4. OXYCODONE HCL AND ACETAMINOPHEN [Concomitant]
     Dosage: UNK
     Route: 048
     Dates: start: 20081223
  5. YAZ [Suspect]
     Indication: CONTRACEPTION
     Dosage: UNK
     Route: 048
     Dates: start: 20070601, end: 20091001
  6. YASMIN [Suspect]
     Indication: ACNE
     Dosage: UNK
  7. IBUPROFEN [Concomitant]
     Indication: PAIN
     Dosage: 400 MG, PRN
  8. CITALOPRAM [Concomitant]
     Dosage: UNK MG, UNK
     Route: 048
     Dates: start: 20080324
  9. CIPROFLOXACIN [Concomitant]
     Indication: URINARY TRACT INFECTION
     Dosage: 500 MG, UNK
     Route: 048
     Dates: start: 20080814
  10. VIVOTIF [TYPHOID VACCINE] [Concomitant]
     Indication: FOREIGN TRAVEL
     Dosage: UNK
     Dates: start: 20081008
  11. BUPROPION SR [Concomitant]
     Dosage: 100 MG, UNK
     Route: 048
     Dates: start: 20080415
  12. FISH OIL [Concomitant]

REACTIONS (2)
  - CHOLECYSTITIS CHRONIC [None]
  - CHOLELITHIASIS [None]
